FAERS Safety Report 6099446-8 (Version None)
Quarter: 2009Q1

REPORT INFORMATION
  Report Type: 
  Country: None (occurrence: None)
  Receive Date: 20090226
  Receipt Date: 20090212
  Transmission Date: 20090719
  Serious: Yes (Other)
  Sender: FDA-Public Use
  Company Number: 2009000425

PATIENT
  Age: 73 Year
  Sex: Female

DRUGS (3)
  1. TARCEVA [Suspect]
     Indication: NON-SMALL CELL LUNG CANCER
     Dosage: 150 MG, QD, ORAL
     Route: 048
     Dates: start: 20090119
  2. METOCLOPRAMIDE [Concomitant]
  3. VITAMIN B12 [Concomitant]

REACTIONS (12)
  - ABDOMINAL PAIN [None]
  - DRUG INEFFECTIVE [None]
  - GINGIVAL ULCERATION [None]
  - HEPATIC FUNCTION ABNORMAL [None]
  - HICCUPS [None]
  - NAUSEA [None]
  - RASH PRURITIC [None]
  - RASH PUSTULAR [None]
  - RED BLOOD CELL COUNT DECREASED [None]
  - VOMITING [None]
  - WEIGHT DECREASED [None]
  - WHITE BLOOD CELL COUNT DECREASED [None]
